FAERS Safety Report 15794322 (Version 1)
Quarter: 2019Q1

REPORT INFORMATION
  Report Type: Report from Study
  Country: US (occurrence: US)
  Receive Date: 20190107
  Receipt Date: 20190107
  Transmission Date: 20190417
  Serious: Yes (Hospitalization, Other)
  Sender: FDA-Public Use
  Company Number: US-SHIRE-US201900150

PATIENT
  Sex: Female

DRUGS (1)
  1. GATTEX [Suspect]
     Active Substance: TEDUGLUTIDE\WATER
     Indication: MALABSORPTION
     Dosage: 0.286 ML, 1X/DAY:QD
     Route: 058
     Dates: start: 20180726

REACTIONS (3)
  - Gallbladder obstruction [Unknown]
  - Cholelithiasis [Unknown]
  - Thrombosis [Unknown]
